FAERS Safety Report 9244869 (Version 2)
Quarter: 2013Q2

REPORT INFORMATION
  Report Type: Spontaneous
  Country: US (occurrence: None)
  Receive Date: 20121130
  Receipt Date: 20130130
  Transmission Date: 20140414
  Serious: Yes (Hospitalization, Other)
  Sender: FDA-Public Use
  Company Number: US201208007355

PATIENT
  Age: 50 Year
  Sex: Female
  Weight: 116.1 kg

DRUGS (12)
  1. BYETTA [Suspect]
     Indication: TYPE 2 DIABETES MELLITUS
     Route: 058
     Dates: start: 20120123
  2. METFORMIN (METFORMIN) [Concomitant]
  3. GLIPIZIDE [Concomitant]
  4. KLOR-CON [Concomitant]
  5. FUROSEMIDE [Concomitant]
  6. METOPROLOL [Concomitant]
  7. SIMVASTATIN [Concomitant]
  8. PROVENTIL HFA [Concomitant]
  9. LISINOPRIL [Concomitant]
  10. OMEPRAZOLE [Concomitant]
  11. FERROUS GLUCONATE [Concomitant]
  12. COLACE [Concomitant]

REACTIONS (8)
  - Pancreatitis acute [None]
  - Duodenal ulcer [None]
  - Weight decreased [None]
  - Flatulence [None]
  - Abdominal distension [None]
  - Nausea [None]
  - Vomiting [None]
  - Abdominal pain upper [None]
